FAERS Safety Report 18241171 (Version 1)
Quarter: 2020Q3

REPORT INFORMATION
  Report Type: Spontaneous
  Country: US (occurrence: US)
  Receive Date: 20200904
  Receipt Date: 20200904
  Transmission Date: 20201103
  Serious: Yes (Death)
  Sender: FDA-Public Use
  Company Number: None

PATIENT
  Age: 78 Year
  Sex: Male
  Weight: 70.76 kg

DRUGS (2)
  1. RISPERIDONE (RISPERIDONE 2MG TAB) [Suspect]
     Active Substance: RISPERIDONE
     Indication: ANXIETY
     Dosage: ?          OTHER FREQUENCY:PM;?
     Route: 048
     Dates: start: 20200522, end: 20200527
  2. RISPERIDONE (RISPERIDONE 2MG TAB) [Suspect]
     Active Substance: RISPERIDONE
     Indication: DEMENTIA
     Dosage: ?          OTHER FREQUENCY:PM;?
     Route: 048
     Dates: start: 20200522, end: 20200527

REACTIONS (4)
  - Gait inability [None]
  - Urinary incontinence [None]
  - Feeding disorder [None]
  - Anal incontinence [None]

NARRATIVE: CASE EVENT DATE: 20200522
